FAERS Safety Report 6917145-4 (Version None)
Quarter: 2010Q3

REPORT INFORMATION
  Report Type: 
  Country: None (occurrence: None)
  Receive Date: 20100810
  Receipt Date: 20100802
  Transmission Date: 20110219
  Serious: Yes (Hospitalization)
  Sender: FDA-Public Use
  Company Number: US-WYE-H16623210

PATIENT
  Age: 73 Year
  Sex: Male

DRUGS (32)
  1. CORDARONE [Suspect]
     Indication: VENTRICULAR TACHYCARDIA
     Route: 048
     Dates: start: 20100519, end: 20100528
  2. CORDARONE [Suspect]
     Route: 048
     Dates: start: 20100529, end: 20100602
  3. CYANOCOBALAMIN [Concomitant]
  4. ACETAMINOPHEN [Concomitant]
  5. FLUOCINONIDE [Concomitant]
  6. FEXOFENADINE [Concomitant]
  7. HYDROMORPHONE [Concomitant]
  8. PRILOSEC [Concomitant]
  9. HYDROCODONE [Concomitant]
  10. CLARITIN [Concomitant]
  11. MUCINEX [Concomitant]
  12. GAS-X [Concomitant]
  13. MYLANTA [Concomitant]
  14. IPRATROPIUM BROMIDE [Concomitant]
  15. SKELAXIN [Concomitant]
  16. SUCRALFATE [Concomitant]
  17. MIRALAX [Concomitant]
  18. LEVAQUIN [Concomitant]
  19. LOPRESSOR [Concomitant]
     Dosage: DOSE NOT PROVIDED
     Dates: end: 20100101
  20. LOPRESSOR [Concomitant]
     Dates: start: 20100101
  21. FLAGYL [Concomitant]
  22. ATIVAN [Concomitant]
  23. DARVOCET-N 100 [Concomitant]
  24. ALBUTEROL [Concomitant]
  25. PROTONIX [Concomitant]
  26. INSULIN [Concomitant]
  27. TETRACOSACTIDE [Concomitant]
  28. BENICAR [Suspect]
     Indication: HYPERTENSION
     Route: 048
     Dates: start: 20071001, end: 20100528
  29. BENICAR [Suspect]
     Route: 048
     Dates: end: 20100530
  30. DEMADEX [Suspect]
     Indication: HYPERTENSION
     Route: 048
     Dates: start: 20050101, end: 20100528
  31. DEMADEX [Suspect]
     Route: 048
     Dates: start: 20100101, end: 20100530
  32. SYNTHROID [Concomitant]

REACTIONS (1)
  - SYNCOPE [None]
